FAERS Safety Report 8509207-5 (Version None)
Quarter: 2012Q3

REPORT INFORMATION
  Report Type: 
  Country: None (occurrence: None)
  Receive Date: 20120703
  Receipt Date: 20120621
  Transmission Date: 20120928
  Serious: Yes (Hospitalization)
  Sender: FDA-Public Use
  Company Number: 1332054

PATIENT
  Age: 54 Year
  Sex: Male

DRUGS (2)
  1. OXALIPLATIN [Suspect]
     Indication: BILE DUCT CANCER
  2. GEMCITABINE HYDROCHLORIDE [Suspect]
     Indication: BILE DUCT CANCER

REACTIONS (9)
  - JAUNDICE [None]
  - RENAL FAILURE ACUTE [None]
  - BILIARY CANCER METASTATIC [None]
  - THROMBOCYTOPENIA [None]
  - DRUG INTERACTION [None]
  - RASH [None]
  - MYALGIA [None]
  - HAEMOLYTIC URAEMIC SYNDROME [None]
  - NEOPLASM PROGRESSION [None]
